FAERS Safety Report 9796030 (Version 3)
Quarter: 2014Q1

REPORT INFORMATION
  Report Type: Spontaneous
  Country: US (occurrence: US)
  Receive Date: 20140103
  Receipt Date: 20140321
  Transmission Date: 20141002
  Serious: Yes (Other)
  Sender: FDA-Public Use
  Company Number: US-BAYER-2014-000768

PATIENT
  Age: 28 Year
  Sex: Female
  Weight: 56.69 kg

DRUGS (2)
  1. YAZ [Suspect]
     Indication: CONTRACEPTION
     Dosage: UNK
     Dates: start: 200501, end: 201212
  2. YASMIN [Suspect]
     Indication: CONTRACEPTION
     Dosage: UNK
     Dates: start: 200606, end: 201212

REACTIONS (2)
  - Deep vein thrombosis [Recovered/Resolved]
  - Injury [Recovered/Resolved]
